FAERS Safety Report 8785189 (Version 3)
Quarter: 2012Q4

REPORT INFORMATION
  Report Type: 
  Country: US (occurrence: US)
  Receive Date: 20120914
  Receipt Date: 20121119
  Transmission Date: 20130627
  Serious: Yes (Hospitalization)
  Sender: FDA-Public Use
  Company Number: US-BAYER-2012-095373

PATIENT
  Age: 39 Year
  Sex: Female
  Weight: 102.95 kg

DRUGS (8)
  1. YAZ [Suspect]
     Indication: CONTRACEPTION
     Dosage: UNK
     Dates: start: 200509, end: 201008
  2. GIANVI [Suspect]
     Dosage: UNK
     Dates: start: 201009, end: 201010
  3. SUPRAX [Concomitant]
     Dosage: UNK
     Dates: start: 20101006
  4. GENTAMYCIN [Concomitant]
     Dosage: UNK
     Dates: start: 20101006
  5. MULTIVITAMINS [Concomitant]
     Dosage: UNK
     Dates: start: 20101006
  6. BC [Concomitant]
     Dosage: UNK
     Dates: start: 20101006
  7. HYDROCHLOROTHIAZIDE [Concomitant]
     Indication: ANKLE SWELLING
     Dosage: UNK
     Dates: start: 2008
  8. POTASSIUM [Concomitant]
     Indication: SUPPLEMENTATION THERAPY
     Dosage: UNK
     Dates: start: 2008

REACTIONS (5)
  - Pulmonary embolism [None]
  - Deep vein thrombosis [None]
  - Deep vein thrombosis [Recovering/Resolving]
  - Thrombophlebitis superficial [Recovering/Resolving]
  - Venous injury [None]
